FAERS Safety Report 4378020-5 (Version None)
Quarter: 2004Q2

REPORT INFORMATION
  Report Type: 
  Country: None (occurrence: None)
  Receive Date: 20040616
  Receipt Date: 20040604
  Transmission Date: 20050107
  Serious: Yes (Hospitalization, Other)
  Sender: FDA-Public Use
  Company Number: US-JNJFOC-20040406574

PATIENT
  Sex: Female
  Weight: 74.39 kg

DRUGS (8)
  1. REMICADE [Suspect]
     Route: 042
  2. REMICADE [Suspect]
     Route: 042
  3. REMICADE [Suspect]
     Indication: RHEUMATOID ARTHRITIS
     Route: 042
  4. ZYRTEC [Concomitant]
  5. TYLENOL [Concomitant]
     Indication: PREMEDICATION
  6. CELEBREX [Concomitant]
  7. FOLIC ACID [Concomitant]
  8. METHOTREXATE [Concomitant]

REACTIONS (5)
  - CHEST PAIN [None]
  - ELECTROCARDIOGRAM T WAVE AMPLITUDE DECREASED [None]
  - FLUSHING [None]
  - INCREASED VENTRICULAR PRELOAD [None]
  - INFUSION RELATED REACTION [None]
